FAERS Safety Report 5125196-8 (Version None)
Quarter: 2006Q4

REPORT INFORMATION
  Report Type: 
  Country: None (occurrence: None)
  Receive Date: 20061010
  Receipt Date: 20061010
  Transmission Date: 20070319
  Serious: Yes (Hospitalization)
  Sender: FDA-Public Use
  Company Number: None

PATIENT
  Age: 59 Year
  Sex: Male

DRUGS (9)
  1. ETODOLAC [Suspect]
     Indication: PAIN
     Dosage: 300 MG TID
     Dates: start: 20051001
  2. ASPIRIN [Suspect]
     Indication: PROPHYLAXIS
  3. NAPROXEN [Suspect]
     Indication: PAIN
  4. BUPROPION HCL [Concomitant]
  5. NITROGLYCERIN [Concomitant]
  6. TRAMADOL HCL [Concomitant]
  7. ATORVASTATIN CALCIUM [Concomitant]
  8. CLOPIDOGREL [Concomitant]
  9. FOSINOPRIL SODIUM [Concomitant]

REACTIONS (2)
  - DUODENAL ULCER [None]
  - GASTROINTESTINAL HAEMORRHAGE [None]
